FAERS Safety Report 5755410-7 (Version None)
Quarter: 2008Q2

REPORT INFORMATION
  Report Type: 
  Country: None (occurrence: None)
  Receive Date: 20080602
  Receipt Date: 20080523
  Transmission Date: 20081010
  Serious: Yes (Hospitalization)
  Sender: FDA-Public Use
  Company Number: JP-JNJFOC-20080505448

PATIENT
  Sex: Female
  Weight: 61 kg

DRUGS (20)
  1. REMICADE [Suspect]
     Dosage: 18 INFUSIONS ON UNKNOWN DATES
     Route: 042
  2. REMICADE [Suspect]
     Route: 042
  3. REMICADE [Suspect]
     Route: 042
  4. REMICADE [Suspect]
     Route: 042
  5. REMICADE [Suspect]
     Indication: RHEUMATOID ARTHRITIS
     Route: 042
  6. RHEUMATREX [Suspect]
     Route: 048
  7. RHEUMATREX [Suspect]
     Route: 048
  8. RHEUMATREX [Suspect]
     Route: 048
  9. RHEUMATREX [Suspect]
     Indication: RHEUMATOID ARTHRITIS
     Route: 048
  10. PREDONINE [Suspect]
     Route: 048
  11. PREDONINE [Suspect]
     Indication: RHEUMATOID ARTHRITIS
     Dosage: 5-20 MG
     Route: 048
  12. FOLIAMIN [Concomitant]
     Indication: PROPHYLAXIS
     Route: 048
  13. CYANOCOBALAMIN [Concomitant]
     Indication: HYPOAESTHESIA
     Route: 048
  14. LOXONIN [Concomitant]
     Indication: RHEUMATOID ARTHRITIS
     Route: 048
  15. CYTOTEC [Concomitant]
     Indication: PROPHYLAXIS
     Dosage: 600RG
     Route: 048
  16. AZULFIDINE EN-TABS [Concomitant]
     Route: 048
  17. TAKEPRON [Concomitant]
     Route: 048
  18. LAC B [Concomitant]
     Route: 048
  19. SELBEX [Concomitant]
     Route: 048
  20. MUCODYNE [Concomitant]
     Route: 048

REACTIONS (1)
  - OVARIAN CANCER [None]
